FAERS Safety Report 7398091-1 (Version None)
Quarter: 2011Q2

REPORT INFORMATION
  Report Type: 
  Country: None (occurrence: None)
  Receive Date: 20110406
  Receipt Date: 20110329
  Transmission Date: 20111010
  Serious: Yes (Hospitalization)
  Sender: FDA-Public Use
  Company Number: CA-AMGEN-KDL392119

PATIENT
  Age: 54 Year
  Sex: Male
  Weight: 68.027 kg

DRUGS (15)
  1. ENBREL [Suspect]
     Dosage: 50 MG, QWK
     Dates: start: 20090917, end: 20100405
  2. PARIET [Concomitant]
  3. ENBREL [Suspect]
     Indication: ANKYLOSING SPONDYLITIS
     Dosage: 50 MG, QWK
     Dates: start: 20090917
  4. LIORESAL [Concomitant]
  5. MONOCOR [Concomitant]
  6. COLACE [Concomitant]
  7. SUPEUDOL [Concomitant]
  8. CALCIUM [Concomitant]
     Dosage: 500 MG, UNK
  9. VITAMIN A [Concomitant]
  10. TYLENOL (CAPLET) [Concomitant]
     Dosage: 650 MG, UNK
  11. PANTOLOC                           /01263201/ [Concomitant]
  12. ENBREL [Suspect]
     Dosage: 50 MG, QWK
     Dates: start: 20100607, end: 20100701
  13. TYLENOL (CAPLET) [Concomitant]
     Dosage: 325 MG, UNK
  14. SENOKOT [Concomitant]
  15. OXYCONTIN [Concomitant]
     Dosage: 10 MG, UNK

REACTIONS (11)
  - ABDOMINAL DISTENSION [None]
  - GENERAL PHYSICAL HEALTH DETERIORATION [None]
  - IMPAIRED HEALING [None]
  - HIP ARTHROPLASTY [None]
  - DEVICE FAILURE [None]
  - DEVICE RELATED INFECTION [None]
  - GASTROINTESTINAL DISORDER [None]
  - FLATULENCE [None]
  - SINUSITIS [None]
  - INCONTINENCE [None]
  - BRONCHITIS [None]
